FAERS Safety Report 8406030-7 (Version None)
Quarter: 2012Q2

REPORT INFORMATION
  Report Type: 
  Country: None (occurrence: None)
  Receive Date: 20120604
  Receipt Date: 20120529
  Transmission Date: 20120825
  Serious: No
  Sender: FDA-Public Use
  Company Number: US-PFIZER INC-2012129175

PATIENT
  Sex: Female
  Weight: 79.365 kg

DRUGS (12)
  1. DILTIAZEM [Concomitant]
     Dosage: 240 MG, DAILY
  2. ASPIRIN [Concomitant]
     Dosage: 81 MG, DAILY
  3. MULTI-VITAMINS [Concomitant]
     Dosage: UNK, DAILY
  4. TRILIPIX [Concomitant]
     Dosage: 135 MG, DAILY
  5. VITAMIN D [Concomitant]
     Dosage: 1000 IU, DAILY
  6. IBUPROFEN (ADVIL) [Suspect]
     Dosage: 200 MG AT NIGHT
     Route: 048
     Dates: start: 20120525, end: 20120526
  7. METOPROLOL SUCCINATE [Concomitant]
     Dosage: 50 MG, DAILY
  8. IBUPROFEN (ADVIL) [Suspect]
     Indication: BACK PAIN
     Dosage: 400 MG, UNK
     Route: 048
     Dates: start: 20120523, end: 20120524
  9. ULTRAM [Suspect]
     Indication: NEUROPATHY PERIPHERAL
     Dosage: 100 MG, DAILY
     Route: 048
  10. EXTRA STRENGTH TYLENOL [Suspect]
     Indication: NEUROPATHY PERIPHERAL
     Dosage: 400 MG, DAILY
     Route: 048
  11. PLAVIX [Concomitant]
     Dosage: 75 MG, DAILY
  12. SIMVASTATIN [Concomitant]
     Dosage: 20 MG, DAILY

REACTIONS (3)
  - PAIN IN EXTREMITY [None]
  - DRUG DOSE OMISSION [None]
  - RASH ERYTHEMATOUS [None]
